FAERS Safety Report 16447296 (Version 3)
Quarter: 2019Q4

REPORT INFORMATION
  Report Type: Report from Study
  Country: US (occurrence: US)
  Receive Date: 20190618
  Receipt Date: 20191022
  Transmission Date: 20200122
  Serious: No
  Sender: FDA-Public Use
  Company Number: PHEH2019US024727

PATIENT
  Sex: Female

DRUGS (2)
  1. EXTAVIA [Suspect]
     Active Substance: INTERFERON BETA-1B
     Dosage: UNK
     Route: 065
  2. EXTAVIA [Suspect]
     Active Substance: INTERFERON BETA-1B
     Indication: MULTIPLE SCLEROSIS
     Dosage: 0.25 ML, QOD
     Route: 003

REACTIONS (8)
  - Nightmare [Unknown]
  - Flushing [Unknown]
  - Syringe issue [Unknown]
  - Anxiety [Unknown]
  - Myalgia [Unknown]
  - Fatigue [Unknown]
  - Injection site haemorrhage [Unknown]
  - Vision blurred [Unknown]
